FAERS Safety Report 21883571 (Version 2)
Quarter: 2023Q1

REPORT INFORMATION
  Report Type: Spontaneous
  Country: US (occurrence: None)
  Receive Date: 20230119
  Receipt Date: 20230315
  Transmission Date: 20230418
  Serious: No
  Sender: FDA-Public Use
  Company Number: US-Merck Healthcare KGaA-9378436

PATIENT
  Sex: Female

DRUGS (1)
  1. MAVENCLAD [Suspect]
     Active Substance: CLADRIBINE
     Indication: Relapsing-remitting multiple sclerosis
     Dosage: YEAR ONE WEEK ONE THERAPY

REACTIONS (6)
  - Wound [Unknown]
  - Skin atrophy [Unknown]
  - Decreased appetite [Unknown]
  - Headache [Unknown]
  - Ear discomfort [Unknown]
  - Ear congestion [Unknown]
